FAERS Safety Report 14092992 (Version 2)
Quarter: 2017Q4

REPORT INFORMATION
  Report Type: Other
  Country: CA (occurrence: CA)
  Receive Date: 20171016
  Receipt Date: 20171117
  Transmission Date: 20180321
  Serious: Yes (Other)
  Sender: FDA-Public Use
  Company Number: CA-APOTEX-2017AP019865

PATIENT
  Age: 11 Year
  Sex: Female

DRUGS (1)
  1. APO-FLUOXETINE [Suspect]
     Active Substance: FLUOXETINE HYDROCHLORIDE
     Indication: PRODUCT USED FOR UNKNOWN INDICATION
     Dosage: 20 MG, UNK
     Route: 065

REACTIONS (4)
  - Tremor [Unknown]
  - Aggression [Unknown]
  - Drug effect incomplete [Unknown]
  - Mania [Unknown]
